FAERS Safety Report 26173299 (Version 1)
Quarter: 2025Q4

REPORT INFORMATION
  Report Type: Spontaneous
  Country: CN (occurrence: CN)
  Receive Date: 20251218
  Receipt Date: 20251218
  Transmission Date: 20260117
  Serious: Yes (Hospitalization, Other)
  Sender: BAXTER
  Company Number: None

PATIENT
  Age: 65 Year
  Sex: Female
  Weight: 65 kg

DRUGS (3)
  1. CYCLOPHOSPHAMIDE [Suspect]
     Active Substance: CYCLOPHOSPHAMIDE
     Indication: Breast cancer female
     Dosage: 0.7 G, QD, ST
     Route: 041
     Dates: start: 20251118, end: 20251118
  2. SODIUM CHLORIDE [Suspect]
     Active Substance: SODIUM CHLORIDE
     Dosage: 500 ML, QD, ST (WITH CYCLOPHOSPHAMIDE)
     Route: 041
     Dates: start: 20251118, end: 20251118
  3. Hua chan su [Concomitant]
     Indication: Breast cancer female
     Dosage: 0.5 G, TID
     Route: 048
     Dates: start: 20251118

REACTIONS (1)
  - Myelosuppression [Recovering/Resolving]

NARRATIVE: CASE EVENT DATE: 20251118
